FAERS Safety Report 8167578-6 (Version None)
Quarter: 2012Q1

REPORT INFORMATION
  Report Type: 
  Country: None (occurrence: None)
  Receive Date: 20120221
  Receipt Date: 20120202
  Transmission Date: 20120608
  Serious: No
  Sender: FDA-Public Use
  Company Number: PERC20120024

PATIENT
  Age: 52 Year
  Sex: Female

DRUGS (1)
  1. PERCOCET [Suspect]
     Indication: MIGRAINE
     Dosage: UNKNOWN, UNKNOWN, ORAL
     Route: 048

REACTIONS (2)
  - PRODUCT QUALITY ISSUE [None]
  - DRUG EFFECT DECREASED [None]
